FAERS Safety Report 12219844 (Version 2)
Quarter: 2016Q3

REPORT INFORMATION
  Report Type: Spontaneous
  Country: CO (occurrence: CO)
  Receive Date: 20160330
  Receipt Date: 20160719
  Transmission Date: 20161109
  Serious: Yes (Other)
  Sender: FDA-Public Use
  Company Number: CO-AMGEN-COLSP2016037665

PATIENT
  Age: 88 Year
  Sex: Female
  Weight: 54 kg

DRUGS (1)
  1. PROLIA [Suspect]
     Active Substance: DENOSUMAB
     Indication: PRODUCT USED FOR UNKNOWN INDICATION
     Dosage: 60 MG, UNK
     Route: 065
     Dates: start: 201410

REACTIONS (3)
  - Fall [Unknown]
  - Hip fracture [Unknown]
  - Drug dose omission [Unknown]

NARRATIVE: CASE EVENT DATE: 201504
